FAERS Safety Report 11752674 (Version 1)
Quarter: 2015Q4

REPORT INFORMATION
  Report Type: Spontaneous
  Country: US (occurrence: US)
  Receive Date: 20151119
  Receipt Date: 20151119
  Transmission Date: 20160304
  Serious: Yes (Other)
  Sender: FDA-Public Use
  Company Number: US-AMGEN-USASP2015119963

PATIENT
  Age: 72 Year
  Sex: Male

DRUGS (1)
  1. BLINCYTO [Suspect]
     Active Substance: BLINATUMOMAB
     Indication: PRODUCT USED FOR UNKNOWN INDICATION
     Dosage: 28 MUG, UNK
     Route: 065

REACTIONS (7)
  - Neurotoxicity [Unknown]
  - Disease recurrence [Unknown]
  - Abasia [Unknown]
  - Ascites [Unknown]
  - Balance disorder [Unknown]
  - Tremor [Unknown]
  - Speech disorder [Unknown]
